FAERS Safety Report 20138312 (Version 2)
Quarter: 2022Q3

REPORT INFORMATION
  Report Type: Report from Study
  Country: US (occurrence: US)
  Receive Date: 20211202
  Receipt Date: 20220922
  Transmission Date: 20221027
  Serious: Yes (Hospitalization)
  Sender: FDA-Public Use
  Company Number: US-BIOVITRUM-2021US7741

PATIENT
  Age: 1 Year
  Sex: Female

DRUGS (3)
  1. KINERET [Suspect]
     Active Substance: ANAKINRA
     Indication: Still^s disease
     Dates: start: 20201125
  2. KINERET [Suspect]
     Active Substance: ANAKINRA
     Dates: start: 202111
  3. KINERET [Suspect]
     Active Substance: ANAKINRA
     Dates: start: 20210901

REACTIONS (4)
  - Liver disorder [Unknown]
  - Fungal infection [Unknown]
  - Contusion [Unknown]
  - Off label use [Unknown]

NARRATIVE: CASE EVENT DATE: 20201125
